FAERS Safety Report 16056281 (Version 4)
Quarter: 2019Q2

REPORT INFORMATION
  Report Type: Report from Study
  Country: US (occurrence: US)
  Receive Date: 20190311
  Receipt Date: 20190613
  Transmission Date: 20190711
  Serious: Yes (Hospitalization, Other)
  Sender: FDA-Public Use
  Company Number: US-SA-2017SA230641

PATIENT
  Age: 69 Year
  Sex: Female

DRUGS (3)
  1. INSULIN GLARGINE [Suspect]
     Active Substance: INSULIN GLARGINE
     Indication: DIABETES MELLITUS
     Dosage: UNK UNK, UNK
     Route: 058
  2. INSULIN GLARGINE [Suspect]
     Active Substance: INSULIN GLARGINE
     Indication: DIABETIC RETINOPATHY
     Dosage: 30 U, BID
     Route: 058
     Dates: start: 20080615
  3. INSULIN GLARGINE [Suspect]
     Active Substance: INSULIN GLARGINE
     Dosage: 15 U IN THE MORNING AND AT NIGHT, BID
     Route: 058

REACTIONS (10)
  - Hospitalisation [Unknown]
  - Macular oedema [Recovered/Resolved]
  - Blindness [Not Recovered/Not Resolved]
  - Cerebrovascular accident [Unknown]
  - Hyperglycaemia [Recovered/Resolved]
  - Inappropriate schedule of product administration [Unknown]
  - Intentional product misuse [Unknown]
  - Malaise [Unknown]
  - Speech disorder [Unknown]
  - Agraphia [Not Recovered/Not Resolved]

NARRATIVE: CASE EVENT DATE: 2008
